FAERS Safety Report 20931444 (Version 1)
Quarter: 2022Q2

REPORT INFORMATION
  Report Type: Spontaneous
  Country: US (occurrence: None)
  Receive Date: 20220607
  Receipt Date: 20220607
  Transmission Date: 20220720
  Serious: Yes (Other)
  Sender: FDA-Public Use
  Company Number: None

PATIENT
  Age: 45 Year
  Sex: Female
  Weight: 90.6 kg

DRUGS (3)
  1. IRON SUCROSE [Suspect]
     Active Substance: IRON SUCROSE
     Indication: Iron deficiency
     Route: 042
  2. ZYRTEC [Concomitant]
     Active Substance: CETIRIZINE HYDROCHLORIDE
     Dates: start: 20220606, end: 20220606
  3. TYLENOL [Concomitant]
     Active Substance: ACETAMINOPHEN
     Dates: start: 20220606, end: 20220606

REACTIONS (5)
  - Swelling [None]
  - Paraesthesia [None]
  - Dyspnoea [None]
  - Peripheral swelling [None]
  - Infusion related reaction [None]

NARRATIVE: CASE EVENT DATE: 20220606
